FAERS Safety Report 14741654 (Version 2)
Quarter: 2018Q2

REPORT INFORMATION
  Report Type: Spontaneous
  Country: US (occurrence: US)
  Receive Date: 20180410
  Receipt Date: 20180523
  Transmission Date: 20180711
  Serious: Yes (Hospitalization)
  Sender: FDA-Public Use
  Company Number: US-GLAXOSMITHKLINE-US2018060774

PATIENT
  Sex: Female

DRUGS (3)
  1. PREDNISONE. [Suspect]
     Active Substance: PREDNISONE
     Indication: ASTHMA
     Dosage: UNK UNK, U
     Route: 048
     Dates: start: 1998
  2. ADVAIR DISKUS [Suspect]
     Active Substance: FLUTICASONE PROPIONATE\SALMETEROL XINAFOATE
     Dosage: UNK UNK, U
  3. ADVAIR DISKUS [Suspect]
     Active Substance: FLUTICASONE PROPIONATE\SALMETEROL XINAFOATE
     Indication: ASTHMA
     Dosage: UNK UNK, U
     Dates: start: 1998

REACTIONS (11)
  - Expired product administered [Unknown]
  - Dyspnoea [Recovered/Resolved]
  - Exposure to toxic agent [Unknown]
  - Adrenal disorder [Not Recovered/Not Resolved]
  - Product quality issue [Unknown]
  - Wrong technique in device usage process [Unknown]
  - Cyanosis [Recovered/Resolved]
  - Somnolence [Unknown]
  - Drug dose omission [Unknown]
  - Malaise [Unknown]
  - Fatigue [Unknown]

NARRATIVE: CASE EVENT DATE: 2013
